FAERS Safety Report 12414659 (Version 2)
Quarter: 2016Q3

REPORT INFORMATION
  Report Type: Report from Study
  Country: US (occurrence: US)
  Receive Date: 20160528
  Receipt Date: 20160729
  Transmission Date: 20161109
  Serious: Yes (Hospitalization, Other)
  Sender: FDA-Public Use
  Company Number: US-BRISTOL-MYERS SQUIBB COMPANY-BMS-2016-040699

PATIENT
  Age: 62 Year
  Sex: Male
  Weight: 82.2 kg

DRUGS (4)
  1. IPILIMUMAB [Suspect]
     Active Substance: IPILIMUMAB
     Indication: SQUAMOUS CELL CARCINOMA OF LUNG
     Dosage: 1 MG/KG, QCYCLE
     Route: 042
     Dates: start: 20160307, end: 20160419
  2. IPILIMUMAB [Suspect]
     Active Substance: IPILIMUMAB
     Dosage: 1 MG/KG, QCYCLE
     Route: 042
     Dates: start: 20160712, end: 20160712
  3. NIVOLUMAB [Suspect]
     Active Substance: NIVOLUMAB
     Indication: SQUAMOUS CELL CARCINOMA OF LUNG
     Dosage: 246.6 MG, UNK
     Route: 042
     Dates: start: 20160419, end: 20160419
  4. NIVOLUMAB [Suspect]
     Active Substance: NIVOLUMAB
     Dosage: 1 DF, UNK
     Route: 042
     Dates: start: 20160712, end: 20160712

REACTIONS (4)
  - Atrial fibrillation [Recovered/Resolved]
  - Muscular weakness [Recovered/Resolved]
  - Lung infection [Recovered/Resolved]
  - Dyspnoea [Recovered/Resolved]

NARRATIVE: CASE EVENT DATE: 20160502
